FAERS Safety Report 25418677 (Version 1)
Quarter: 2025Q2

REPORT INFORMATION
  Report Type: Spontaneous
  Country: US (occurrence: US)
  Receive Date: 20250610
  Receipt Date: 20250610
  Transmission Date: 20250717
  Serious: No
  Sender: ASTELLAS
  Company Number: US-ASTELLAS-2025-AER-021060

PATIENT
  Sex: Female

DRUGS (1)
  1. ZOLBETUXIMAB [Suspect]
     Active Substance: ZOLBETUXIMAB
     Indication: Adenocarcinoma gastric
     Route: 065

REACTIONS (2)
  - Abdominal discomfort [Unknown]
  - Nausea [Unknown]
